FAERS Safety Report 6677640-2 (Version None)
Quarter: 2010Q2

REPORT INFORMATION
  Report Type: 
  Country: None (occurrence: None)
  Receive Date: 20100412
  Receipt Date: 20100223
  Transmission Date: 20101027
  Serious: No
  Sender: FDA-Public Use
  Company Number: CA-ALEXION-A201000214

PATIENT
  Sex: Female

DRUGS (6)
  1. SOLIRIS [Suspect]
     Indication: PAROXYSMAL NOCTURNAL HAEMOGLOBINURIA
     Dosage: 600 MG, QW X4
     Route: 042
     Dates: start: 20081130
  2. SOLIRIS [Suspect]
     Dosage: 900 MG, Q2W
     Route: 042
     Dates: start: 20091229
  3. CYCLOSPORINE [Concomitant]
     Dosage: 100 MG, QD
     Route: 048
  4. PANTOPRAZOLE [Concomitant]
     Dosage: 40 MG, QD
     Route: 048
     Dates: end: 20100201
  5. ORAL CONTRACEPTIVE NOS [Concomitant]
     Dosage: UNK
     Route: 048
  6. MULTI-VITAMINS [Concomitant]
     Dosage: UNK
     Route: 048

REACTIONS (2)
  - CHEST PAIN [None]
  - FEELING COLD [None]
